FAERS Safety Report 10927611 (Version 2)
Quarter: 2015Q1

REPORT INFORMATION
  Report Type: Spontaneous
  Country: FR (occurrence: FR)
  Receive Date: 20150318
  Receipt Date: 20150325
  Transmission Date: 20150721
  Serious: Yes (Other)
  Sender: FDA-Public Use
  Company Number: FR-UCBSA-2015007411

PATIENT
  Age: 61 Year
  Sex: Male
  Weight: 105 kg

DRUGS (2)
  1. CIMZIA [Suspect]
     Active Substance: CERTOLIZUMAB PEGOL
     Indication: RHEUMATOID ARTHRITIS
     Dosage: EV 2 WEEKS(QOW)
     Route: 058
     Dates: start: 20120503, end: 20140901
  2. METOJECT [Concomitant]
     Active Substance: METHOTREXATE SODIUM
     Indication: RHEUMATOID ARTHRITIS
     Dosage: 25 MG, WEEKLY (QW)
     Route: 058
     Dates: start: 1995

REACTIONS (1)
  - Cerebral cyst [Recovered/Resolved with Sequelae]

NARRATIVE: CASE EVENT DATE: 20140902
